FAERS Safety Report 12212586 (Version 2)
Quarter: 2016Q1

REPORT INFORMATION
  Report Type: Spontaneous
  Country: DE (occurrence: DE)
  Receive Date: 20160326
  Receipt Date: 20160326
  Transmission Date: 20160526
  Serious: Yes (Hospitalization)
  Sender: FDA-Public Use
  Company Number: DE-ACCORD-038946

PATIENT
  Age: 53 Year
  Sex: Female
  Weight: 109 kg

DRUGS (6)
  1. RAMILICH [Concomitant]
     Active Substance: RAMIPRIL
  2. QUETIAPINE ACCORD [Suspect]
     Active Substance: QUETIAPINE
     Indication: DEPRESSION
     Dosage: STRENGTH: 300MG
     Route: 048
     Dates: start: 201510, end: 201512
  3. BISOPROLOL [Concomitant]
     Active Substance: BISOPROLOL
  4. METFORMIN [Concomitant]
     Active Substance: METFORMIN HYDROCHLORIDE
     Indication: DIABETES MELLITUS
     Dosage: 2 X 850 MG
  5. FLUANXOL [Concomitant]
     Active Substance: FLUPENTIXOL
     Dates: start: 201601, end: 201603
  6. AMISULPRIDE [Concomitant]
     Active Substance: AMISULPRIDE

REACTIONS (7)
  - Condition aggravated [Recovering/Resolving]
  - Restlessness [Recovered/Resolved]
  - Hallucination, auditory [Recovered/Resolved]
  - Drug effect decreased [Recovered/Resolved]
  - Sleep disorder [Recovered/Resolved]
  - Suicidal ideation [Recovering/Resolving]
  - Product substitution issue [Unknown]

NARRATIVE: CASE EVENT DATE: 201510
